FAERS Safety Report 11243408 (Version 1)
Quarter: 2015Q3

REPORT INFORMATION
  Report Type: Spontaneous
  Country: US (occurrence: US)
  Receive Date: 20150707
  Receipt Date: 20150707
  Transmission Date: 20151125
  Serious: Yes (Life-Threatening)
  Sender: FDA-Public Use
  Company Number: US-HOSPIRA-2924396

PATIENT
  Age: 23 Year
  Sex: Female

DRUGS (2)
  1. LIDOCAINE HYDROCHLORIDE. [Suspect]
     Active Substance: LIDOCAINE HYDROCHLORIDE
     Indication: EPIDURAL ANAESTHESIA
     Dosage: 1:200,000
  2. MORPHINE SULPHATE [Suspect]
     Active Substance: MORPHINE SULFATE
     Indication: EPIDURAL ANAESTHESIA
     Dosage: DOSED TO SURGICAL LEVEL

REACTIONS (4)
  - Apnoea [Recovered/Resolved]
  - Coma [Recovered/Resolved]
  - Areflexia [Recovered/Resolved]
  - Paraparesis [Recovered/Resolved]
